FAERS Safety Report 6110298-X (Version None)
Quarter: 2009Q1

REPORT INFORMATION
  Report Type: 
  Country: None (occurrence: None)
  Receive Date: 20090310
  Receipt Date: 20090305
  Transmission Date: 20090719
  Serious: Yes (Hospitalization)
  Sender: FDA-Public Use
  Company Number: US-BAYER-200910634BCC

PATIENT
  Age: 83 Year
  Sex: Female
  Weight: 43 kg

DRUGS (4)
  1. ALEVE [Suspect]
     Indication: PAIN
  2. SYNTHROID [Concomitant]
  3. ABILIFY [Concomitant]
  4. LEXAPRO [Concomitant]

REACTIONS (1)
  - RENAL IMPAIRMENT [None]
